FAERS Safety Report 9933249 (Version 2)
Quarter: 2014Q1

REPORT INFORMATION
  Report Type: Report from Study
  Country: US (occurrence: US)
  Receive Date: 20140228
  Receipt Date: 20140228
  Transmission Date: 20141002
  Serious: No
  Sender: FDA-Public Use
  Company Number: US-ABBVIE-13P-163-1080192-00

PATIENT
  Age: 57 Year
  Sex: Male
  Weight: 99.88 kg

DRUGS (13)
  1. ANDROGEL [Suspect]
     Indication: BLOOD TESTOSTERONE DECREASED
     Dosage: 2 PUMPS
     Route: 061
     Dates: start: 201204
  2. CRESTOR [Concomitant]
     Indication: BLOOD CHOLESTEROL INCREASED
  3. ATENOLOL [Concomitant]
     Indication: HYPERTENSION
  4. LISINOPRIL [Concomitant]
     Indication: HYPERTENSION
  5. HCT [Concomitant]
     Indication: HYPERTENSION
  6. CLONAZEPAM [Concomitant]
     Indication: INSOMNIA
  7. ASPIRIN [Concomitant]
     Indication: PRODUCT USED FOR UNKNOWN INDICATION
  8. MULTIVITAMIN [Concomitant]
     Indication: SUPPLEMENTATION THERAPY
  9. ZINC [Concomitant]
     Indication: SUPPLEMENTATION THERAPY
  10. ESTER C [Concomitant]
     Indication: SUPPLEMENTATION THERAPY
  11. B COMPLEX [Concomitant]
     Indication: SUPPLEMENTATION THERAPY
  12. GLUCOSAMINE CHONDROITIN [Concomitant]
     Indication: SUPPLEMENTATION THERAPY
  13. PRAVASTATIN [Concomitant]
     Indication: BLOOD CHOLESTEROL INCREASED

REACTIONS (7)
  - Semen volume decreased [Not Recovered/Not Resolved]
  - Testicular pain [Not Recovered/Not Resolved]
  - Libido decreased [Not Recovered/Not Resolved]
  - Application site pruritus [Not Recovered/Not Resolved]
  - Pruritus generalised [Not Recovered/Not Resolved]
  - Aggression [Unknown]
  - Impatience [Unknown]
